FAERS Safety Report 9044614 (Version 6)
Quarter: 2015Q2

REPORT INFORMATION
  Report Type: Report from Study
  Country: DE (occurrence: DE)
  Receive Date: 20130130
  Receipt Date: 20150626
  Transmission Date: 20150821
  Serious: Yes (Hospitalization, Other)
  Sender: FDA-Public Use
  Company Number: DE-UCBSA-072888

PATIENT
  Sex: Female

DRUGS (10)
  1. PREDNISOLONE. [Concomitant]
     Active Substance: PREDNISOLONE
     Indication: RHEUMATOID ARTHRITIS
     Dosage: DAILY DOSE: 5MG
     Route: 048
  2. PREDNISONE. [Concomitant]
     Active Substance: PREDNISONE
     Dosage: 15 MG, ONCE DAILY (QD)
     Dates: start: 20130419
  3. PREDNISONE. [Concomitant]
     Active Substance: PREDNISONE
     Indication: RHEUMATOID ARTHRITIS
     Dosage: 5 MG, ONCE DAILY (QD)
     Dates: start: 201003, end: 201111
  4. METHOTREXATE [Concomitant]
     Active Substance: METHOTREXATE
     Dosage: DOSE: 15 MG QS
     Dates: start: 2007, end: 201111
  5. CERTOLIZUMAB PEGOL RA [Suspect]
     Active Substance: CERTOLIZUMAB PEGOL
     Indication: RHEUMATOID ARTHRITIS
     Route: 058
     Dates: start: 20111117, end: 20121207
  6. METHOTREXATE [Concomitant]
     Active Substance: METHOTREXATE
     Indication: RHEUMATOID ARTHRITIS
     Dosage: DOSE: 15 MG QS
     Dates: start: 20120223
  7. FOLSAN [Concomitant]
     Active Substance: FOLIC ACID
     Indication: PROPHYLAXIS
     Dosage: DOSE: 5 MG QS
     Dates: start: 201202
  8. METHOTREXATE [Concomitant]
     Active Substance: METHOTREXATE
     Dosage: 15 MG, WEEKLY (QW)
     Route: 058
     Dates: start: 20111111
  9. PANTOPRAZOLE [Concomitant]
     Active Substance: PANTOPRAZOLE SODIUM
     Indication: GASTRITIS
     Dosage: 20 MG, ONCE DAILY (QD)
     Dates: start: 2008, end: 201212
  10. PREDNISONE. [Concomitant]
     Active Substance: PREDNISONE
     Dosage: 5 MG, ONCE DAILY (QD)
     Dates: start: 201202, end: 201304

REACTIONS (1)
  - Gastric ulcer perforation [Recovered/Resolved]

NARRATIVE: CASE EVENT DATE: 20121206
